FAERS Safety Report 6928321-9 (Version None)
Quarter: 2010Q3

REPORT INFORMATION
  Report Type: 
  Country: None (occurrence: None)
  Receive Date: 20100817
  Receipt Date: 20100813
  Transmission Date: 20110219
  Serious: Yes (Hospitalization)
  Sender: FDA-Public Use
  Company Number: CO-ROCHE-720880

PATIENT
  Sex: Female

DRUGS (2)
  1. CELLCEPT [Suspect]
     Indication: SYSTEMIC LUPUS ERYTHEMATOSUS
     Dosage: FREQUENCY: EVERYDAY
     Route: 048
     Dates: start: 20090526
  2. MABTHERA [Suspect]
     Indication: SYSTEMIC LUPUS ERYTHEMATOSUS
     Route: 042
     Dates: start: 20100521

REACTIONS (4)
  - HEADACHE [None]
  - HYPERTENSION [None]
  - VASCULITIS CEREBRAL [None]
  - VOMITING [None]
